FAERS Safety Report 21028387 (Version 6)
Quarter: 2022Q4

REPORT INFORMATION
  Report Type: Report from Study
  Country: US (occurrence: US)
  Receive Date: 20220630
  Receipt Date: 20221004
  Transmission Date: 20230112
  Serious: Yes (Death, Life-Threatening, Hospitalization, Disabling)
  Sender: FDA-Public Use
  Company Number: US-REGENERON PHARMACEUTICALS, INC.-2022-084825

PATIENT
  Age: 72 Year
  Sex: Male

DRUGS (11)
  1. INVESTIGATIONAL PRODUCT [Suspect]
     Active Substance: INVESTIGATIONAL PRODUCT
     Indication: Prostate cancer stage IV
     Dosage: 300 MG, WEEKLY
     Route: 042
     Dates: start: 20220531, end: 20220621
  2. CEMIPLIMAB [Suspect]
     Active Substance: CEMIPLIMAB
     Indication: Prostate cancer stage IV
     Dosage: 350 MG, Q3W
     Route: 042
     Dates: start: 20220621, end: 20220621
  3. CALTRATE WITH VITAMIN D [Concomitant]
     Active Substance: CALCIUM CARBONATE\CHOLECALCIFEROL
     Indication: Supplementation therapy
     Dosage: 600 MG, BID
     Route: 048
     Dates: start: 20220103
  4. CRESTOR [Concomitant]
     Active Substance: ROSUVASTATIN CALCIUM
     Indication: Hyperlipidaemia
     Dosage: 20 MG, QD
     Route: 048
     Dates: start: 20220421
  5. TRAMADOL [Concomitant]
     Active Substance: TRAMADOL
     Indication: Musculoskeletal chest pain
     Dosage: 50 MG, AS NECESSARY
     Route: 048
     Dates: start: 20220103
  6. TRAMADOL [Concomitant]
     Active Substance: TRAMADOL
     Indication: Arthralgia
  7. TORSEMIDE [Concomitant]
     Active Substance: TORSEMIDE
     Indication: Prophylaxis
     Dosage: 20 MG, QD
     Route: 048
     Dates: start: 20211120, end: 20220531
  8. TRELSTAR [Concomitant]
     Active Substance: TRIPTORELIN PAMOATE
     Indication: Prostate cancer
     Dosage: 11.25 MG, EVERY THREE MONTHS
     Route: 030
     Dates: start: 20190815
  9. XGEVA [Concomitant]
     Active Substance: DENOSUMAB
     Indication: Metastatic bone disease prophylaxis
     Dosage: 120 MG, Q4W
     Route: 058
     Dates: start: 20220103
  10. IBUPROFEN [Concomitant]
     Active Substance: IBUPROFEN
     Indication: Prophylaxis
     Dosage: 400 MG, AS NECESSARY
     Route: 048
     Dates: start: 20220607
  11. SODIUM CHLORIDE [Concomitant]
     Active Substance: SODIUM CHLORIDE
     Indication: Tachycardia
     Dosage: 1000 ML, SINGLE
     Route: 042
     Dates: start: 20220623, end: 20220623

REACTIONS (3)
  - Haemophagocytic lymphohistiocytosis [Fatal]
  - Cytokine release syndrome [Recovered/Resolved]
  - Guillain-Barre syndrome [Not Recovered/Not Resolved]

NARRATIVE: CASE EVENT DATE: 20220625
